APPROVED DRUG PRODUCT: ALVIMOPAN
Active Ingredient: ALVIMOPAN
Strength: 12MG
Dosage Form/Route: CAPSULE;ORAL
Application: A208295 | Product #001 | TE Code: AB
Applicant: WATSON LABORATORIES INC AN INDIRECT WHOLLY OWNED SUB OF TEVA PHARMACEUTICALS USA INC
Approved: Dec 19, 2019 | RLD: No | RS: Yes | Type: RX